FAERS Safety Report 7460592-5 (Version None)
Quarter: 2011Q2

REPORT INFORMATION
  Report Type: 
  Country: None (occurrence: None)
  Receive Date: 20110505
  Receipt Date: 20110325
  Transmission Date: 20111010
  Serious: Yes (Hospitalization, Other)
  Sender: FDA-Public Use
  Company Number: JP-PFIZER INC-2011094106

PATIENT
  Age: 68 Year
  Sex: Male
  Weight: 75 kg

DRUGS (9)
  1. CELECOX [Suspect]
     Dosage: 100 MG, UNK
     Route: 048
  2. MECOBALAMIN [Concomitant]
  3. PRORENAL [Concomitant]
  4. AMARYL [Concomitant]
  5. TERNELIN [Concomitant]
  6. OLMETEC [Suspect]
     Dosage: 20 MG, UNK
     Route: 048
  7. OLMETEC [Suspect]
     Dosage: 10 MG, UNK
     Route: 048
  8. MELBIN [Suspect]
     Dosage: 250 MG, 2X/DAY (AFTER BREAKFAST/DINNER)
  9. JUVELA [Concomitant]

REACTIONS (4)
  - ACUTE PRERENAL FAILURE [None]
  - HYPOTENSION [None]
  - WEIGHT DECREASED [None]
  - DEHYDRATION [None]
